FAERS Safety Report 9416140 (Version 1)
Quarter: 2013Q3

REPORT INFORMATION
  Report Type: Spontaneous
  Country: US (occurrence: None)
  Receive Date: 20130717
  Receipt Date: 20130717
  Transmission Date: 20140515
  Serious: Yes (Life-Threatening)
  Sender: FDA-Public Use
  Company Number: 2013P1010163

PATIENT
  Age: 55 Year
  Sex: Female
  Weight: 58.06 kg

DRUGS (2)
  1. AZO [Suspect]
     Indication: URINARY TRACT INFECTION
     Dosage: 2 TABLETS
     Route: 048
     Dates: start: 20130615, end: 20130615
  2. GNC MULTIVITAMIN LIVE AND UNKNOWN [Concomitant]

REACTIONS (3)
  - Erythema [None]
  - Tongue discolouration [None]
  - Lymphadenopathy [None]
